FAERS Safety Report 5040030-2 (Version None)
Quarter: 2006Q2

REPORT INFORMATION
  Report Type: 
  Country: None (occurrence: None)
  Receive Date: 20060630
  Receipt Date: 20020219
  Transmission Date: 20061013
  Serious: Yes (Hospitalization)
  Sender: FDA-Public Use
  Company Number: PHBS2002AT02719

PATIENT
  Age: 44 Year
  Sex: Female

DRUGS (12)
  1. TRILEPTAL [Suspect]
     Dosage: UP TO 1500 MG/DAY
     Route: 048
     Dates: start: 20011122, end: 20011204
  2. TRILEPTAL [Suspect]
     Dosage: 1500 MG/DAY
     Route: 048
     Dates: start: 20011205, end: 20020111
  3. DICLOFENAC [Suspect]
     Dosage: 200 MG/DAY
     Route: 048
     Dates: start: 20020106, end: 20020111
  4. SEROQUEL [Suspect]
     Dosage: UP TO 300 MG/DAY
     Route: 048
     Dates: start: 20011114, end: 20011202
  5. SEROQUEL [Suspect]
     Dosage: 300 MG/DAY
     Route: 048
     Dates: start: 20011203, end: 20020111
  6. EFFECTIN [Suspect]
     Dosage: UP TO 300 MG/DAY
     Route: 048
     Dates: start: 20010108, end: 20020104
  7. EFFECTIN [Suspect]
     Dosage: 300 MG/DAY
     Route: 048
     Dates: start: 20020105, end: 20020111
  8. TRITTICO [Suspect]
     Dosage: 300 MG/DAY
     Route: 048
     Dates: start: 20011114, end: 20020111
  9. NOZINAN [Suspect]
     Dosage: UP TO 100 MG/DAY
     Route: 048
     Dates: start: 20011206, end: 20011217
  10. NOZINAN [Suspect]
     Dosage: 100 MG/DAY
     Route: 048
     Dates: start: 20011219, end: 20020111
  11. NEXIUM [Suspect]
     Dosage: 20 NG/DAY
     Route: 048
     Dates: start: 20011214, end: 20020111
  12. VENLAFAXINE HCL [Concomitant]

REACTIONS (3)
  - PANCYTOPENIA [None]
  - PYREXIA [None]
  - TONSILLITIS [None]
